FAERS Safety Report 6428096-6 (Version None)
Quarter: 2009Q4

REPORT INFORMATION
  Report Type: 
  Country: None (occurrence: None)
  Receive Date: 20091102
  Receipt Date: 20091016
  Transmission Date: 20100525
  Serious: Yes (Hospitalization, Other)
  Sender: FDA-Public Use
  Company Number: 2009002910

PATIENT
  Age: 63 Year
  Sex: Female

DRUGS (14)
  1. ERLOTINIB HYDROCHLORIDE [Suspect]
     Indication: COLORECTAL CANCER
     Dosage: (100 MG, QD), ORAL
     Route: 048
     Dates: start: 20090707, end: 20090904
  2. CETUXIMAB (CETUXIMAB) [Suspect]
     Indication: COLORECTAL CANCER
     Dosage: (428 MG, 1 IN 1 WK), INTRAVENOUS
     Route: 042
     Dates: start: 20090707, end: 20090908
  3. SODIUM CHLORIDE [Concomitant]
  4. MAGNESIUM SULFATE [Concomitant]
  5. MAGNESIUM (MAGNESIUM) [Concomitant]
  6. AVAPRO [Concomitant]
  7. PARACETAMOL (PARACETAMOL) [Concomitant]
  8. COLOXYL WITH SENNA (COLOXYL WITH SENNA) [Concomitant]
  9. LANTUS [Concomitant]
  10. INSULIN GLARGINE (INSULIN GLARGINE) [Concomitant]
  11. MINOCYCLINE HCL [Concomitant]
  12. MAGMIN (MAGNESIUM ASPARTATE) [Concomitant]
  13. PHENOBARBITAL TAB [Concomitant]
  14. CLARITIN [Concomitant]

REACTIONS (5)
  - BLOOD CALCIUM DECREASED [None]
  - BLOOD POTASSIUM INCREASED [None]
  - FATIGUE [None]
  - HYPOMAGNESAEMIA [None]
  - MUSCLE SPASMS [None]
